FAERS Safety Report 26047375 (Version 4)
Quarter: 2025Q4

REPORT INFORMATION
  Report Type: Spontaneous
  Country: US (occurrence: US)
  Receive Date: 20251114
  Receipt Date: 20251230
  Transmission Date: 20260118
  Serious: Yes (Hospitalization, Other)
  Sender: ELI LILLY AND COMPANY
  Company Number: US-ELI_LILLY_AND_COMPANY-US202511014352

PATIENT
  Age: 63 Year
  Sex: Female

DRUGS (7)
  1. CIALIS [Suspect]
     Active Substance: TADALAFIL
     Indication: Product used for unknown indication
     Dosage: UNK UNK, UNKNOWN
     Route: 065
  2. TYVASO DPI [Suspect]
     Active Substance: TREPROSTINIL
     Indication: Pulmonary arterial hypertension
     Dosage: 16 UG, QID
     Route: 055
     Dates: start: 2025, end: 202510
  3. TYVASO DPI [Suspect]
     Active Substance: TREPROSTINIL
     Dosage: 32 UG, QID
     Route: 055
     Dates: start: 202509, end: 202510
  4. TYVASO DPI [Suspect]
     Active Substance: TREPROSTINIL
     Dosage: 16 UG, UNKNOWN
     Route: 065
     Dates: start: 20251028
  5. TYVASO DPI [Suspect]
     Active Substance: TREPROSTINIL
     Dosage: 16 UG, BID
     Route: 065
     Dates: start: 20251106
  6. TYVASO DPI [Suspect]
     Active Substance: TREPROSTINIL
     Dosage: 32 UG, QID
     Route: 055
  7. MACITENTAN\TADALAFIL [Suspect]
     Active Substance: MACITENTAN\TADALAFIL
     Indication: Product used for unknown indication
     Dosage: UNK UNK, UNKNOWN
     Route: 048
     Dates: start: 202510, end: 202510

REACTIONS (19)
  - General physical health deterioration [Not Recovered/Not Resolved]
  - Fluid retention [Unknown]
  - Syncope [Unknown]
  - Paranasal sinus discomfort [Unknown]
  - Sensation of blood flow [Unknown]
  - Sinus headache [Unknown]
  - Mental impairment [Recovering/Resolving]
  - Throat irritation [Not Recovered/Not Resolved]
  - Oropharyngeal pain [Unknown]
  - Cough [Unknown]
  - Nasopharyngitis [Unknown]
  - Pharyngitis [Unknown]
  - Hypersensitivity [Unknown]
  - Headache [Recovering/Resolving]
  - Migraine [Recovering/Resolving]
  - Dyspnoea [Unknown]
  - Dizziness [Unknown]
  - Blood pressure decreased [Unknown]
  - Fatigue [Unknown]

NARRATIVE: CASE EVENT DATE: 20250101
